FAERS Safety Report 14023781 (Version 1)
Quarter: 2017Q3

REPORT INFORMATION
  Report Type: Spontaneous
  Country: CA (occurrence: CA)
  Receive Date: 20170929
  Receipt Date: 20170929
  Transmission Date: 20171128
  Serious: Yes (Other)
  Sender: FDA-Public Use
  Company Number: CA-PFIZER INC-2017412823

PATIENT
  Age: 46 Year
  Sex: Female

DRUGS (1)
  1. METRONIDAZOLE. [Suspect]
     Active Substance: METRONIDAZOLE
     Dosage: UNK
     Dates: start: 201612

REACTIONS (3)
  - Fistula [Unknown]
  - Fungal infection [Unknown]
  - Subcutaneous abscess [Unknown]

NARRATIVE: CASE EVENT DATE: 2017
